FAERS Safety Report 5247166-1 (Version None)
Quarter: 2007Q1

REPORT INFORMATION
  Report Type: 
  Country: None (occurrence: None)
  Receive Date: 20070222
  Receipt Date: 20070205
  Transmission Date: 20070707
  Serious: Yes (Other)
  Sender: FDA-Public Use
  Company Number: B0458649A

PATIENT
  Age: 47 Year
  Sex: Female

DRUGS (2)
  1. IMITREX [Suspect]
     Indication: MIGRAINE
     Dosage: 85 MG/AS REQUIRED
  2. NAPROXEN SODIUM [Suspect]
     Indication: MIGRAINE
     Dosage: 500 MG/AS REQUIRED

REACTIONS (1)
  - ACUTE CORONARY SYNDROME [None]
